FAERS Safety Report 9402350 (Version 1)
Quarter: 2013Q3

REPORT INFORMATION
  Report Type: Spontaneous
  Country: US (occurrence: US)
  Receive Date: 20130716
  Receipt Date: 20130716
  Transmission Date: 20140515
  Serious: Yes (Other)
  Sender: FDA-Public Use
  Company Number: US-PFIZER INC-2013204762

PATIENT
  Age: 39 Year
  Sex: Female
  Weight: 86.17 kg

DRUGS (18)
  1. RELPAX [Suspect]
     Indication: MIGRAINE
     Dosage: 40 MG, AS NEEDED
  2. IMITREX [Suspect]
     Indication: MIGRAINE
     Dosage: UNK
  3. DILTIAZEM [Concomitant]
     Dosage: 120 MG, 1X/DAY
  4. PROPAFENONE [Concomitant]
     Dosage: 75 MG (HALF TABLET OF 150 MG), 3X/DAY
  5. WARFARIN [Concomitant]
     Dosage: 5 MG, 1X/DAY
  6. METHADONE [Concomitant]
     Dosage: 10 MG, 3X/DAY
  7. LISINOPRIL [Concomitant]
     Dosage: 20 MG, 1X/DAY
  8. ALPRAZOLAM [Concomitant]
     Dosage: 1 MG (HALF TABLET OF 2MG), 3X/DAY
  9. TRAZODONE [Concomitant]
     Dosage: 100 MG, 1X/DAY
  10. VENLAFAXINE HYDROCHLORIDE [Concomitant]
     Dosage: 75 MG, 1X/DAY
  11. IBUPROFEN [Concomitant]
     Dosage: 600 MG, 4X/DAY
  12. FOLIC ACID [Concomitant]
     Dosage: UNK, 1X/DAY
  13. VITAMIN B12 [Concomitant]
     Dosage: UNK, 1X/DAY
  14. VITAMIN B6 [Concomitant]
     Dosage: UNK, 1X/DAY
  15. PROMETHAZINE [Concomitant]
     Dosage: 25 MG, AS NEEDED
  16. RECLAST [Concomitant]
     Indication: ARTHRITIS
     Dosage: UNK, YEARLY
  17. CALCIUM [Concomitant]
     Dosage: UNK, 1X/DAY
  18. MAGNESIUM [Concomitant]
     Dosage: UNK, 1X/DAY

REACTIONS (2)
  - Nerve injury [Unknown]
  - Hypertension [Unknown]
